FAERS Safety Report 18074691 (Version 1)
Quarter: 2020Q3

REPORT INFORMATION
  Report Type: Spontaneous
  Country: US (occurrence: US)
  Receive Date: 20200727
  Receipt Date: 20200727
  Transmission Date: 20201103
  Serious: No
  Sender: FDA-Public Use
  Company Number: US-ABBVIE-19K-163-2982094-00

PATIENT
  Age: 47 Year
  Sex: Female

DRUGS (2)
  1. SYNTHROID [Suspect]
     Active Substance: LEVOTHYROXINE SODIUM
     Indication: PRODUCT USED FOR UNKNOWN INDICATION
     Route: 048
     Dates: start: 1994, end: 2017
  2. SYNTHROID [Suspect]
     Active Substance: LEVOTHYROXINE SODIUM
     Route: 048
     Dates: start: 2019

REACTIONS (7)
  - Gait disturbance [Recovering/Resolving]
  - Road traffic accident [Recovered/Resolved]
  - Head injury [Recovered/Resolved]
  - Palpitations [Recovering/Resolving]
  - Tremor [Recovering/Resolving]
  - Alopecia [Recovering/Resolving]
  - Temperature intolerance [Recovering/Resolving]

NARRATIVE: CASE EVENT DATE: 20101023
